FAERS Safety Report 6406129-0 (Version None)
Quarter: 2009Q4

REPORT INFORMATION
  Report Type: 
  Country: None (occurrence: None)
  Receive Date: 20091016
  Receipt Date: 20091016
  Transmission Date: 20100525
  Serious: Yes (Other)
  Sender: FDA-Public Use
  Company Number: None

PATIENT
  Age: 49 Year
  Sex: Female
  Weight: 54.4316 kg

DRUGS (2)
  1. NUCYNTA 50MG MCNEIL [Suspect]
     Indication: INTERVERTEBRAL DISC DISORDER
     Dosage: 1-2 TABLET EVERY 8 HOURS MAX 6
     Dates: start: 20090924, end: 20091012
  2. NUCYNTA 50MG MCNEIL [Suspect]
     Indication: PAIN
     Dosage: 1-2 TABLET EVERY 8 HOURS MAX 6
     Dates: start: 20090924, end: 20091012

REACTIONS (15)
  - AGITATION [None]
  - ANXIETY [None]
  - ASTHENIA [None]
  - CARDIAC DISORDER [None]
  - FATIGUE [None]
  - FEELING ABNORMAL [None]
  - FEELING DRUNK [None]
  - FEELING HOT [None]
  - GAIT DISTURBANCE [None]
  - HOT FLUSH [None]
  - IMPAIRED DRIVING ABILITY [None]
  - IRRITABILITY [None]
  - SENSATION OF HEAVINESS [None]
  - SUICIDAL IDEATION [None]
  - THINKING ABNORMAL [None]
